FAERS Safety Report 8905094 (Version 1)
Quarter: 2012Q4

REPORT INFORMATION
  Report Type: 
  Country: MX (occurrence: MX)
  Receive Date: 20121111
  Receipt Date: 20121111
  Transmission Date: 20130627
  Serious: Yes (Death)
  Sender: FDA-Public Use
  Company Number: PHHY2012MX065151

PATIENT
  Sex: Male

DRUGS (2)
  1. GLIVEC [Suspect]
     Indication: CHRONIC MYELOID LEUKAEMIA
     Dosage: 600 mg, UNK
     Dates: start: 20120718
  2. GLIVEC [Suspect]
     Dosage: 800 mg, UNK

REACTIONS (2)
  - Death [Fatal]
  - Gene mutation identification test positive [Unknown]
